FAERS Safety Report 9122660 (Version 1)
Quarter: 2013Q1

REPORT INFORMATION
  Report Type: Spontaneous
  Country: US (occurrence: None)
  Receive Date: 20130131
  Receipt Date: 20130131
  Transmission Date: 20140127
  Serious: Yes (Other)
  Sender: FDA-Public Use
  Company Number: JPI-P-029347

PATIENT
  Age: 45 Year
  Sex: Female

DRUGS (1)
  1. XYREM (500 MILLIGRAM/MILLILITERS, SOLUTION) (SODIUM OXYBATE) [Suspect]
     Indication: NARCOLEPSY
     Dosage: 4.5 GM (2.25 GM, 2 IN 1 D), ORAL
     Route: 048
     Dates: start: 20090403

REACTIONS (35)
  - Convulsion [None]
  - Apnoea [None]
  - Memory impairment [None]
  - Feeling drunk [None]
  - Motion sickness [None]
  - Visual impairment [None]
  - Nausea [None]
  - Disorientation [None]
  - Anxiety [None]
  - Headache [None]
  - Feeling jittery [None]
  - Panic attack [None]
  - Hypoaesthesia [None]
  - Feeling abnormal [None]
  - Somnambulism [None]
  - Diarrhoea [None]
  - Choking [None]
  - Abnormal sleep-related event [None]
  - Chromaturia [None]
  - Crystal urine [None]
  - Memory impairment [None]
  - Dizziness [None]
  - Gastrooesophageal reflux disease [None]
  - Blood pressure increased [None]
  - Oedema peripheral [None]
  - Food allergy [None]
  - Weight increased [None]
  - Swelling face [None]
  - Abdominal discomfort [None]
  - Muscle spasms [None]
  - Balance disorder [None]
  - Feeling hot [None]
  - Asthenia [None]
  - Hypotension [None]
  - Crying [None]
